FAERS Safety Report 4699141-3 (Version None)
Quarter: 2005Q2

REPORT INFORMATION
  Report Type: 
  Country: None (occurrence: None)
  Receive Date: 20050623
  Receipt Date: 20050623
  Transmission Date: 20051028
  Serious: Yes (Other)
  Sender: FDA-Public Use
  Company Number: None

PATIENT
  Age: 81 Year
  Sex: Male
  Weight: 58.9676 kg

DRUGS (1)
  1. BENICAR [Suspect]

REACTIONS (7)
  - ASTHENIA [None]
  - CIRCULATORY COLLAPSE [None]
  - CONTUSION [None]
  - DIZZINESS [None]
  - FALL [None]
  - HEAD INJURY [None]
  - LOSS OF CONSCIOUSNESS [None]
